FAERS Safety Report 4422717-5 (Version None)
Quarter: 2004Q3

REPORT INFORMATION
  Report Type: 
  Country: None (occurrence: None)
  Receive Date: 20040713
  Receipt Date: 20040519
  Transmission Date: 20050211
  Serious: No
  Sender: FDA-Public Use
  Company Number: PHEH2004US05544

PATIENT
  Age: 4 Month
  Sex: Male

DRUGS (1)
  1. ELIDEL [Suspect]
     Indication: DRY SKIN
     Dosage: ONCE/SINGLE, TOPICAL
     Route: 061
     Dates: start: 20040518, end: 20040518

REACTIONS (1)
  - ERYTHEMA [None]
